FAERS Safety Report 16757574 (Version 2)
Quarter: 2019Q3

REPORT INFORMATION
  Report Type: Report from Study
  Country: NL (occurrence: NL)
  Receive Date: 20190830
  Receipt Date: 20190917
  Transmission Date: 20191005
  Serious: Yes (Hospitalization)
  Sender: FDA-Public Use
  Company Number: NL-ROCHE-2388953

PATIENT
  Age: 54 Year
  Sex: Female

DRUGS (3)
  1. CAPECITABINE. [Concomitant]
     Active Substance: CAPECITABINE
     Route: 048
     Dates: start: 20190522, end: 20190703
  2. PACLITAXEL. [Suspect]
     Active Substance: PACLITAXEL
     Indication: TRIPLE NEGATIVE BREAST CANCER
     Dosage: MOST RECENT DOSE ON 26/DEC/2018
     Route: 042
     Dates: start: 20181017
  3. ATEZOLIZUMAB. [Suspect]
     Active Substance: ATEZOLIZUMAB
     Indication: TRIPLE NEGATIVE BREAST CANCER
     Dosage: MOST RECENT DOSE ON 09/JAN/2019 840 MG EVERY 2 WEEKS?MOST RECENT DOSE ON 30/JAN/2019 1200 MG EVERY 3
     Route: 042
     Dates: start: 20181017

REACTIONS (1)
  - Autoimmune disorder [Recovered/Resolved with Sequelae]

NARRATIVE: CASE EVENT DATE: 20190715
